FAERS Safety Report 18116973 (Version 2)
Quarter: 2020Q3

REPORT INFORMATION
  Report Type: Report from Study
  Country: LB (occurrence: LB)
  Receive Date: 20200805
  Receipt Date: 20200811
  Transmission Date: 20201103
  Serious: Yes (Other)
  Sender: FDA-Public Use
  Company Number: LB-SEATTLE GENETICS-2017SGN01600

PATIENT
  Sex: Female

DRUGS (2)
  1. BRENTUXIMAB VEDOTIN?MPI [Suspect]
     Active Substance: BRENTUXIMAB VEDOTIN
     Indication: HODGKIN^S DISEASE
     Dosage: 150 MILLIGRAM, MONTHLY
     Route: 042
     Dates: start: 20170609
  2. OPDIVO [Concomitant]
     Active Substance: NIVOLUMAB
     Indication: HODGKIN^S DISEASE
     Dosage: UNK
     Route: 065
     Dates: start: 20170609

REACTIONS (3)
  - Product prescribing error [Unknown]
  - Hodgkin^s disease recurrent [Unknown]
  - Off label use [Unknown]
